FAERS Safety Report 6223172-5 (Version None)
Quarter: 2009Q2

REPORT INFORMATION
  Report Type: 
  Country: None (occurrence: None)
  Receive Date: 20090611
  Receipt Date: 20090608
  Transmission Date: 20091009
  Serious: Yes (Hospitalization)
  Sender: FDA-Public Use
  Company Number: US-B.I. PHARMACEUTICALS,INC./RIDGEFIELD-2009-BP-06268BP

PATIENT
  Sex: Female

DRUGS (13)
  1. CATAPRES-TTS-1 [Suspect]
     Indication: HYPERTENSION
     Dosage: .1MG
     Route: 062
     Dates: start: 20090512, end: 20090515
  2. CATAPRES-TTS-1 [Suspect]
     Indication: BLOOD PRESSURE INCREASED
  3. CLONIDINE HCL [Suspect]
     Indication: HYPERTENSION
     Dosage: .2MG
     Dates: start: 20090515, end: 20090520
  4. CLONIDINE HCL [Suspect]
     Indication: BLOOD PRESSURE INCREASED
  5. ATENOLOL [Concomitant]
     Indication: HYPERTENSION
  6. DIOVAN [Concomitant]
     Indication: HYPERTENSION
     Dosage: 320MG
  7. PRAVASTATIN [Concomitant]
     Indication: BLOOD CHOLESTEROL INCREASED
     Dates: start: 20090514
  8. PANTOPRAZOLE SODIUM [Concomitant]
     Indication: GASTROOESOPHAGEAL REFLUX DISEASE
     Dosage: 40MG
  9. AMBIEN CR [Concomitant]
  10. ASPIRIN [Concomitant]
  11. VAGIFEM [Concomitant]
  12. LACTULOSE [Concomitant]
     Indication: GASTROINTESTINAL MOTILITY DISORDER
  13. LACTULOSE [Concomitant]
     Indication: INTESTINAL OBSTRUCTION

REACTIONS (2)
  - APPLICATION SITE BURN [None]
  - PORPHYRIA ACUTE [None]
